FAERS Safety Report 6609277-5 (Version None)
Quarter: 2010Q1

REPORT INFORMATION
  Report Type: 
  Country: None (occurrence: None)
  Receive Date: 20100224
  Receipt Date: 20100215
  Transmission Date: 20100710
  Serious: Yes (Other)
  Sender: FDA-Public Use
  Company Number: 2010US000525

PATIENT

DRUGS (4)
  1. PROGRAF [Suspect]
     Dosage: ORAL
     Route: 048
  2. PREDNISONE TAB [Suspect]
  3. PEGYLATED INTERFERON ALFA-2A (PEGINTERFERON ALFA-2A) [Suspect]
     Dosage: 135 UG, UID/QD,
  4. RIBAVIRIN [Suspect]

REACTIONS (2)
  - DISEASE RECURRENCE [None]
  - HEPATITIS C [None]
